FAERS Safety Report 6771916-6 (Version None)
Quarter: 2010Q2

REPORT INFORMATION
  Report Type: 
  Country: None (occurrence: None)
  Receive Date: 20100616
  Receipt Date: 20100409
  Transmission Date: 20101027
  Serious: No
  Sender: FDA-Public Use
  Company Number: US-JNJFOC-20090605570

PATIENT
  Sex: Male
  Weight: 97.52 kg

DRUGS (6)
  1. INVEGA [Suspect]
     Indication: BIPOLAR DISORDER
     Route: 048
  2. INVEGA [Suspect]
     Indication: SCHIZOAFFECTIVE DISORDER
     Route: 048
  3. INVEGA [Suspect]
     Indication: AFFECTIVE DISORDER
     Route: 048
  4. LITHIUM [Concomitant]
     Indication: BIPOLAR DISORDER
  5. LITHIUM [Concomitant]
     Indication: AFFECTIVE DISORDER
  6. AMBIEN [Concomitant]
     Indication: SLEEP DISORDER

REACTIONS (2)
  - DIARRHOEA [None]
  - WEIGHT DECREASED [None]
